FAERS Safety Report 21693027 (Version 1)
Quarter: 2022Q4

REPORT INFORMATION
  Report Type: Spontaneous
  Country: US (occurrence: US)
  Receive Date: 20221207
  Receipt Date: 20221207
  Transmission Date: 20230112
  Serious: No
  Sender: FDA-Public Use
  Company Number: US-MYLANLABS-2022M1129827

PATIENT
  Sex: Female
  Weight: 68.04 kg

DRUGS (1)
  1. XANAX [Suspect]
     Active Substance: ALPRAZOLAM
     Indication: Hot flush
     Dosage: UNK
     Route: 065

REACTIONS (1)
  - Off label use [Unknown]
